FAERS Safety Report 8159975-X (Version None)
Quarter: 2012Q1

REPORT INFORMATION
  Report Type: 
  Country: None (occurrence: None)
  Receive Date: 20120223
  Receipt Date: 20120216
  Transmission Date: 20120608
  Serious: Yes (Hospitalization)
  Sender: FDA-Public Use
  Company Number: US-GLAXOSMITHKLINE-A0886472A

PATIENT
  Age: 60 Year
  Sex: Female

DRUGS (5)
  1. AVANDIA [Suspect]
     Indication: DIABETES MELLITUS
     Route: 048
     Dates: start: 20030702, end: 20050706
  2. CARDIZEM [Concomitant]
  3. PEPCID [Concomitant]
  4. DIOVAN [Concomitant]
  5. BECONASE [Concomitant]

REACTIONS (3)
  - CARDIAC FAILURE CONGESTIVE [None]
  - OSTEOPOROSIS [None]
  - ANKLE FRACTURE [None]
